FAERS Safety Report 6760021-0 (Version None)
Quarter: 2010Q2

REPORT INFORMATION
  Report Type: 
  Country: None (occurrence: None)
  Receive Date: 20100608
  Receipt Date: 20100529
  Transmission Date: 20101027
  Serious: Yes (Other)
  Sender: FDA-Public Use
  Company Number: JP-BAYER-201027291GPV

PATIENT
  Age: 74 Year
  Sex: Male

DRUGS (3)
  1. ASPIRIN [Suspect]
     Indication: ANTICOAGULANT THERAPY
     Dosage: LOW-DOSE
  2. LOSARTAN POTASSIUM [Concomitant]
  3. AMLODIPINE [Concomitant]

REACTIONS (1)
  - DUODENAL ULCER [None]
